FAERS Safety Report 6159066-3 (Version None)
Quarter: 2009Q2

REPORT INFORMATION
  Report Type: 
  Country: None (occurrence: None)
  Receive Date: 20090417
  Receipt Date: 20090406
  Transmission Date: 20091009
  Serious: Yes (Hospitalization)
  Sender: FDA-Public Use
  Company Number: ES-ELI_LILLY_AND_COMPANY-ES200904002599

PATIENT
  Age: 73 Year
  Sex: Female

DRUGS (4)
  1. FORTEO [Suspect]
     Indication: OSTEOPOROSIS
     Dosage: 20 UG, UNK
     Route: 058
     Dates: start: 20081101
  2. LYRICA [Concomitant]
  3. DURAGESIC-100 [Concomitant]
  4. ANALGIPLUS [Concomitant]

REACTIONS (7)
  - AMNESIA [None]
  - BLOOD PRESSURE INCREASED [None]
  - DISORIENTATION [None]
  - HEADACHE [None]
  - PYREXIA [None]
  - TOOTH INFECTION [None]
  - VOMITING [None]
